FAERS Safety Report 8106508-X (Version None)
Quarter: 2012Q1

REPORT INFORMATION
  Report Type: 
  Country: None (occurrence: None)
  Receive Date: 20120202
  Receipt Date: 20120124
  Transmission Date: 20120608
  Serious: Yes (Hospitalization, Other)
  Sender: FDA-Public Use
  Company Number: US-BAYER-2011-082068

PATIENT
  Sex: Female
  Weight: 61.224 kg

DRUGS (17)
  1. MORPHINE [Concomitant]
     Dosage: 15 MG, BID
     Route: 048
  2. PERCOCET [Concomitant]
     Dosage: UNK
  3. AMITRIPTYLINE HCL [Concomitant]
     Dosage: 50 MG, QD
     Route: 048
  4. LORTAB [Concomitant]
  5. NUVARING [Concomitant]
     Dosage: UNK UNK, Q3WK
     Route: 067
  6. YAZ [Suspect]
     Indication: PREMENSTRUAL SYNDROME
     Dosage: UNK
     Dates: start: 20070401, end: 20080120
  7. DILAUDID [Concomitant]
     Dosage: 4 MG, Q4HR
     Route: 048
  8. LISINOPRIL [Concomitant]
     Dosage: 10 MG, QD
     Route: 048
  9. OXYCONTIN [Concomitant]
  10. GABAPENTIN [Concomitant]
     Indication: MIGRAINE
     Dosage: 300 MG, TID
     Route: 048
  11. YASMIN [Suspect]
     Indication: PREMENSTRUAL SYNDROME
     Dosage: UNK
     Dates: start: 20070401, end: 20080120
  12. TOPAMAX [Concomitant]
  13. ADDERALL XR 10 [Concomitant]
     Dosage: 10 MG, QD
     Route: 048
  14. PROMETHAZINE [Concomitant]
     Dosage: 25 MG/ML, QID
  15. SERTRALINE HYDROCHLORIDE [Concomitant]
     Dosage: 25 MG, QD
     Route: 048
  16. NAPROXEN [Concomitant]
  17. HYDROMORPHONE HCL [Concomitant]
     Dosage: 4 MG, QID
     Route: 048

REACTIONS (4)
  - INJURY [None]
  - PAIN [None]
  - CONGENITAL CYSTIC KIDNEY DISEASE [None]
  - THROMBOSIS [None]
